FAERS Safety Report 8487395-7 (Version None)
Quarter: 2012Q2

REPORT INFORMATION
  Report Type: 
  Country: None (occurrence: None)
  Receive Date: 20120628
  Receipt Date: 20120628
  Transmission Date: 20120825
  Serious: Yes (Hospitalization)
  Sender: FDA-Public Use
  Company Number: None

PATIENT
  Age: 64 Year
  Sex: Female

DRUGS (2)
  1. PEGASYS [Suspect]
     Indication: HEPATITIS C
     Dosage: 180MCG QW SQ
     Route: 058
     Dates: start: 20120316, end: 20120617
  2. RIBAVIRIN [Suspect]
     Indication: HEPATITIS C
     Dosage: 600MG BID PO
     Route: 048
     Dates: start: 20120315, end: 20120617

REACTIONS (4)
  - DYSPNOEA [None]
  - HYPOCALCAEMIA [None]
  - GAIT DISTURBANCE [None]
  - HYPOKALAEMIA [None]
